FAERS Safety Report 18643917 (Version 2)
Quarter: 2020Q4

REPORT INFORMATION
  Report Type: Report from Study
  Country: GB (occurrence: GB)
  Receive Date: 20201221
  Receipt Date: 20201229
  Transmission Date: 20210114
  Serious: Yes (Other)
  Sender: FDA-Public Use
  Company Number: GB-PFIZER INC-2020495691

PATIENT
  Age: 59 Year
  Sex: Male

DRUGS (3)
  1. DAUNORUBICIN [Suspect]
     Active Substance: DAUNORUBICIN
     Indication: ACUTE MYELOID LEUKAEMIA
     Dosage: 3+10 60 MG/M2, DAILY ON DAYS 1, 3 AND 5 (3 DOSES)
     Route: 042
     Dates: start: 20201209, end: 20201210
  2. MYLOTARG [Suspect]
     Active Substance: GEMTUZUMAB OZOGAMICIN
     Indication: ACUTE MYELOID LEUKAEMIA
     Dosage: 3 MG/M2 ADMINISTERED VIA INFUSION OVER A 2 HOUR PERIOD, MAX 5MG OR 1 VIAL IF 2 DOSES ALLOCATED
     Route: 042
     Dates: start: 20201209, end: 20201209
  3. DAUNORUBICIN [Suspect]
     Active Substance: DAUNORUBICIN
     Dosage: 3+8 N 50 MG/M2 DAYS 1, 3 AND 5 (3 DOSES)
     Route: 042

REACTIONS (1)
  - Myocardial ischaemia [Not Recovered/Not Resolved]

NARRATIVE: CASE EVENT DATE: 20201210
